FAERS Safety Report 5073364-6 (Version None)
Quarter: 2006Q3

REPORT INFORMATION
  Report Type: 
  Country: None (occurrence: None)
  Receive Date: 20060808
  Receipt Date: 20060628
  Transmission Date: 20061208
  Serious: Yes (Life-Threatening, Hospitalization)
  Sender: FDA-Public Use
  Company Number: DEWYE850828JUN06

PATIENT
  Sex: Male
  Weight: 73 kg

DRUGS (5)
  1. ENBREL [Suspect]
     Indication: PSORIATIC ARTHROPATHY
     Route: 058
     Dates: end: 20060109
  2. METHOTREXATE [Suspect]
     Route: 051
  3. MOBIC [Suspect]
     Route: 065
     Dates: start: 20050101, end: 20060109
  4. FOLIC ACID [Concomitant]
  5. PREDNISOLONE [Concomitant]

REACTIONS (2)
  - CORONARY ARTERY DISEASE [None]
  - MYOCARDIAL INFARCTION [None]
